FAERS Safety Report 13042474 (Version 2)
Quarter: 2016Q4

REPORT INFORMATION
  Report Type: Spontaneous
  Country: NO (occurrence: NO)
  Receive Date: 20161219
  Receipt Date: 20161227
  Transmission Date: 20170207
  Serious: Yes (Congenital Anomaly)
  Sender: FDA-Public Use
  Company Number: PHHY2016NO170762

PATIENT
  Sex: Female
  Weight: 3.83 kg

DRUGS (5)
  1. TRILEPTAL [Suspect]
     Active Substance: OXCARBAZEPINE
     Indication: FOETAL EXPOSURE DURING PREGNANCY
     Dosage: PATIENT^S MOTHER DOSE: 600 MG, BID (1200 MG)
     Route: 064
  2. FOLIC ACID. [Concomitant]
     Active Substance: FOLIC ACID
     Indication: FOETAL EXPOSURE DURING PREGNANCY
     Dosage: PATIENT^S MOTHER DOSE: 4 MG
     Route: 065
  3. ORFIRIL [Suspect]
     Active Substance: VALPROIC ACID
     Indication: FOETAL EXPOSURE DURING PREGNANCY
     Dosage: PATIENT^S MOTHER DOSE: 600 MG, BID (1200 MG)
     Route: 064
  4. ORFIRIL [Suspect]
     Active Substance: VALPROIC ACID
     Dosage: PATIENT^S MOTHER DOSE: 600X2 (1200 MG)
     Route: 064
  5. FOLIC ACID. [Concomitant]
     Active Substance: FOLIC ACID
     Dosage: PATIENT^S MOTHER DOSE: 4 MG
     Route: 065

REACTIONS (4)
  - Foetal exposure during pregnancy [Recovered/Resolved]
  - Speech disorder developmental [Unknown]
  - Developmental delay [Unknown]
  - Generalised tonic-clonic seizure [Unknown]
